FAERS Safety Report 8022251-X (Version None)
Quarter: 2011Q4

REPORT INFORMATION
  Report Type: 
  Country: None (occurrence: None)
  Receive Date: 20111229
  Receipt Date: 20111219
  Transmission Date: 20120403
  Serious: Yes (Hospitalization)
  Sender: FDA-Public Use
  Company Number: 2011MA017950

PATIENT
  Age: 58 Year
  Sex: Male

DRUGS (2)
  1. NAPROXEN [Suspect]
     Dosage: 500 MG, BID
  2. SULFASALAZINE [Suspect]
     Indication: RHEUMATOID ARTHRITIS
     Dosage: 1 GM, BID, PO
     Route: 048

REACTIONS (5)
  - HEADACHE [None]
  - NAUSEA [None]
  - RASH [None]
  - PYREXIA [None]
  - CHILLS [None]
